FAERS Safety Report 20452920 (Version 3)
Quarter: 2022Q1

REPORT INFORMATION
  Report Type: Report from Study
  Country: US (occurrence: US)
  Receive Date: 20220210
  Receipt Date: 20220218
  Transmission Date: 20220423
  Serious: No
  Sender: FDA-Public Use
  Company Number: US-NOVARTISTESTPH-NVSC2022US028525

PATIENT
  Sex: Male

DRUGS (1)
  1. COSENTYX [Suspect]
     Active Substance: SECUKINUMAB
     Indication: Pyoderma gangrenosum
     Dosage: UNK UNK, QW
     Route: 058

REACTIONS (5)
  - Fluid retention [Unknown]
  - Weight increased [Unknown]
  - Metabolic disorder [Unknown]
  - Peripheral swelling [Unknown]
  - Off label use [Unknown]
